FAERS Safety Report 14921715 (Version 1)
Quarter: 2018Q2

REPORT INFORMATION
  Report Type: Spontaneous
  Country: US (occurrence: US)
  Receive Date: 20180522
  Receipt Date: 20180522
  Transmission Date: 20180711
  Serious: No
  Sender: FDA-Public Use
  Company Number: US-ELI_LILLY_AND_COMPANY-US201805001284

PATIENT
  Sex: Male

DRUGS (2)
  1. HUMALOG [Suspect]
     Active Substance: INSULIN LISPRO
     Indication: TYPE 1 DIABETES MELLITUS
     Dosage: 12 U, DAILY (6 SHOTS OF 2 UNITS)
     Route: 058
     Dates: start: 201802
  2. LANTUS [Concomitant]
     Active Substance: INSULIN GLARGINE
     Indication: DIABETES MELLITUS
     Dosage: 2 U, EACH EVENING (EACH NIGHT)

REACTIONS (3)
  - Accidental underdose [Recovering/Resolving]
  - Blood glucose increased [Recovering/Resolving]
  - Injection site bruising [Recovering/Resolving]
